FAERS Safety Report 5712235-6 (Version None)
Quarter: 2008Q2

REPORT INFORMATION
  Report Type: 
  Country: None (occurrence: None)
  Receive Date: 20080422
  Receipt Date: 20080411
  Transmission Date: 20081010
  Serious: Yes (Other)
  Sender: FDA-Public Use
  Company Number: DE-JNJFOC-20080302594

PATIENT
  Age: 42 Year
  Sex: Female
  Weight: 68 kg

DRUGS (5)
  1. REMICADE [Suspect]
     Route: 042
  2. REMICADE [Suspect]
     Indication: ANKYLOSING SPONDYLITIS
     Dosage: 4 INFUSIONS RECEIVED, DATES UNSPECIFIED
     Route: 042
  3. INDOMETHACIN [Concomitant]
     Indication: PREMEDICATION
  4. DICLOFENAC [Concomitant]
     Indication: PREMEDICATION
  5. IBUPROFEN [Concomitant]
     Indication: PREMEDICATION

REACTIONS (1)
  - BREAST CANCER [None]
